FAERS Safety Report 10264162 (Version 1)
Quarter: 2014Q2

REPORT INFORMATION
  Report Type: Spontaneous
  Country: GB (occurrence: None)
  Receive Date: 20140624
  Receipt Date: 20140624
  Transmission Date: 20141212
  Serious: Yes (Life-Threatening, Hospitalization)
  Sender: FDA-Public Use
  Company Number: AUR-APL-2014-06633

PATIENT
  Age: 52 Year
  Sex: Female

DRUGS (6)
  1. NAPROXEN 500MG (NAPROXEN) UNKNOWN, 500MG [Suspect]
     Indication: PRODUCT USED FOR UNKNOWN INDICATION
     Route: 048
  2. SERTRALINE 50MG (SERTRALINE) UNKNOWN, 50MG [Suspect]
     Indication: PRODUCT USED FOR UNKNOWN INDICATION
     Route: 048
     Dates: start: 20140428, end: 20140528
  3. LANSOPRAZOL (LANSOPRAZOLE) [Concomitant]
  4. QVAR (BELCOMETASONE DIPROPIONATE) [Concomitant]
  5. RAMIPRIL (RAMIPRIL) [Concomitant]
  6. SALBUTAMOL (SALBUTAMOL) [Concomitant]

REACTIONS (2)
  - Gastrointestinal haemorrhage [None]
  - Ulcer [None]
